FAERS Safety Report 24677831 (Version 1)
Quarter: 2024Q4

REPORT INFORMATION
  Report Type: Spontaneous
  Country: US (occurrence: US)
  Receive Date: 20241129
  Receipt Date: 20241129
  Transmission Date: 20250115
  Serious: Yes (Other)
  Sender: ABBVIE
  Company Number: US-ABBVIE-6019386

PATIENT
  Sex: Male

DRUGS (1)
  1. REFRESH OPTIVE MEGA-3 [Suspect]
     Active Substance: CARBOXYMETHYLCELLULOSE SODIUM\GLYCERIN\POLYSORBATE 80
     Indication: Dry eye
     Route: 047

REACTIONS (7)
  - Retinal detachment [Unknown]
  - Retinal operation [Unknown]
  - Off label use [Unknown]
  - Lens capsulotomy [Unknown]
  - Cataract [Unknown]
  - Ocular hyperaemia [Unknown]
  - Injury corneal [Unknown]
